FAERS Safety Report 17873482 (Version 1)
Quarter: 2020Q2

REPORT INFORMATION
  Report Type: Spontaneous
  Country: US (occurrence: US)
  Receive Date: 20200609
  Receipt Date: 20200609
  Transmission Date: 20200714
  Serious: Yes (Other)
  Sender: FDA-Public Use
  Company Number: US-SUN PHARMACEUTICAL INDUSTRIES LTD-2020R1-249284

PATIENT
  Age: 89 Year
  Sex: Male

DRUGS (3)
  1. LATANOPROST. [Suspect]
     Active Substance: LATANOPROST
     Indication: GLAUCOMA
     Dosage: UNK UNK, DAILY (ONCE AT NIGHT IN THE LEFT EYE)
  2. LOTEPREDNOL ETABONATE [Suspect]
     Active Substance: LOTEPREDNOL ETABONATE
     Indication: GLAUCOMA
     Dosage: UNK UNK, TID (THE LEFT EYE)
  3. DORZOLAMIDE [Suspect]
     Active Substance: DORZOLAMIDE
     Indication: GLAUCOMA
     Dosage: UNK UNK, DAILY (ONCE IN THE MORNING IN THE LEFT EYE)

REACTIONS (1)
  - Ulcerative keratitis [Unknown]
